FAERS Safety Report 5893332-1 (Version None)
Quarter: 2008Q3

REPORT INFORMATION
  Report Type: 
  Country: None (occurrence: None)
  Receive Date: 20080919
  Receipt Date: 20080911
  Transmission Date: 20090109
  Serious: Yes (Hospitalization)
  Sender: FDA-Public Use
  Company Number: 6045672

PATIENT
  Age: 72 Year
  Sex: Male

DRUGS (9)
  1. LODOZ 2.5 MG/6.25 MG (COATED TABLET) (HYDROCHLOROTHIAZIDE, BISOPROLOL [Suspect]
     Indication: DRUG USE FOR UNKNOWN INDICATION
     Dosage: 2.5 MG (2.5 MG, 1 IN 1 D), ORAL
     Route: 048
  2. PARACETAMOL (PARACETAMOL) [Suspect]
     Indication: DRUG USE FOR UNKNOWN INDICATION
     Dosage: ORAL
     Route: 048
     Dates: start: 20080626
  3. AVANDIA [Suspect]
     Indication: DRUG USE FOR UNKNOWN INDICATION
     Dosage: 8 MG (8 MG, 1 D), ORAL
     Route: 048
  4. PRIMPERAN (TABLET) (METOCLOPRAMIDE) [Concomitant]
  5. ASPIRIN [Concomitant]
  6. METFORMIN HCL [Concomitant]
  7. VALSARTAN [Concomitant]
  8. SPIRIVA [Concomitant]
  9. PRAVASTATIN [Concomitant]

REACTIONS (6)
  - ANOREXIA [None]
  - CYTOLYTIC HEPATITIS [None]
  - HEPATIC FAILURE [None]
  - HEPATITIS ACUTE [None]
  - HYPERBILIRUBINAEMIA [None]
  - INFLUENZA LIKE ILLNESS [None]
